FAERS Safety Report 7759220-0 (Version None)
Quarter: 2011Q3

REPORT INFORMATION
  Report Type: 
  Country: None (occurrence: None)
  Receive Date: 20110919
  Receipt Date: 20110905
  Transmission Date: 20111222
  Serious: Yes (Other)
  Sender: FDA-Public Use
  Company Number: TR-NOVOPROD-333096

PATIENT

DRUGS (2)
  1. LIRAGLUTIDE FLEXPEN [Suspect]
     Indication: TYPE 2 DIABETES MELLITUS
     Dosage: 1.2 MG, QD
     Dates: start: 20110706, end: 20110717
  2. LIRAGLUTIDE FLEXPEN [Suspect]
     Dosage: 0.6 MG, QD
     Route: 058
     Dates: start: 20110723, end: 20110725

REACTIONS (2)
  - ABDOMINAL DISTENSION [None]
  - DIARRHOEA [None]
